FAERS Safety Report 5276584-0 (Version None)
Quarter: 2007Q1

REPORT INFORMATION
  Report Type: 
  Country: None (occurrence: None)
  Receive Date: 20070327
  Receipt Date: 20070314
  Transmission Date: 20070707
  Serious: Yes (Hospitalization)
  Sender: FDA-Public Use
  Company Number: US-ELI_LILLY_AND_COMPANY-US200603003349

PATIENT
  Age: 61 Year
  Sex: Male
  Weight: 118 kg

DRUGS (3)
  1. ZYPREXA [Suspect]
     Indication: SCHIZOPHRENIA
     Dosage: 10 MG, UNK
     Dates: start: 20030301, end: 20050101
  2. ZYPREXA [Suspect]
     Dosage: 20 MG, UNK
  3. ABILIFY [Concomitant]
     Dates: start: 20050101

REACTIONS (4)
  - CARDIAC FAILURE CONGESTIVE [None]
  - CHRONIC OBSTRUCTIVE PULMONARY DISEASE [None]
  - DIABETES MELLITUS [None]
  - HYPERGLYCAEMIA [None]
